FAERS Safety Report 5642742-6 (Version None)
Quarter: 2008Q1

REPORT INFORMATION
  Report Type: 
  Country: None (occurrence: None)
  Receive Date: 20080227
  Receipt Date: 20080227
  Transmission Date: 20080703
  Serious: Yes (Hospitalization)
  Sender: FDA-Public Use
  Company Number: None

PATIENT
  Sex: Female
  Weight: 99.7913 kg

DRUGS (9)
  1. DILANTIN [Suspect]
     Indication: CONVULSION
     Dosage: PO ON ALTERNATE DAYS (THERAPY DATES: PRIOR TO ADMISSION)
     Route: 048
  2. CALCIUM [Concomitant]
  3. M.V.I. [Concomitant]
  4. MYSOLINE [Concomitant]
  5. SLO-MAG [Concomitant]
  6. SYNTHROID [Concomitant]
  7. LACTULOSE [Concomitant]
  8. CELEXA [Concomitant]
  9. PRILOSEC [Concomitant]

REACTIONS (5)
  - ASTHENIA [None]
  - HYPOTENSION [None]
  - HYPOTHERMIA [None]
  - ORAL INTAKE REDUCED [None]
  - UPPER RESPIRATORY TRACT INFECTION [None]
